FAERS Safety Report 13985818 (Version 2)
Quarter: 2017Q3

REPORT INFORMATION
  Report Type: Spontaneous
  Country: US (occurrence: US)
  Receive Date: 20170919
  Receipt Date: 20170928
  Transmission Date: 20171128
  Serious: No
  Sender: FDA-Public Use
  Company Number: US-PFIZER INC-2017399513

PATIENT
  Age: 84 Year
  Sex: Male

DRUGS (9)
  1. SPIRONOLACTONE. [Suspect]
     Active Substance: SPIRONOLACTONE
     Dosage: UNK
  2. BACITRACIN W/NEOMYCIN/POLYMYXIN B [Suspect]
     Active Substance: BACITRACIN\NEOMYCIN\POLYMYXIN B
     Dosage: UNK
  3. AMIODARONE HCL [Suspect]
     Active Substance: AMIODARONE HYDROCHLORIDE
     Dosage: UNK
  4. CLOPIDOGREL [Suspect]
     Active Substance: CLOPIDOGREL BISULFATE
     Dosage: UNK
  5. BACITRACIN. [Suspect]
     Active Substance: BACITRACIN
     Dosage: UNK
  6. NEOMYCIN SULFATE. [Suspect]
     Active Substance: NEOMYCIN SULFATE
     Dosage: UNK
  7. ASPIRIN. [Suspect]
     Active Substance: ASPIRIN
     Dosage: UNK
  8. POLYMYXIN B. [Suspect]
     Active Substance: POLYMYXIN B
     Dosage: UNK
  9. RIVAROXABAN [Suspect]
     Active Substance: RIVAROXABAN
     Dosage: UNK

REACTIONS (1)
  - Drug hypersensitivity [Unknown]
